FAERS Safety Report 11069615 (Version 1)
Quarter: 2015Q2

REPORT INFORMATION
  Report Type: Spontaneous
  Country: US (occurrence: US)
  Receive Date: 20150427
  Receipt Date: 20150427
  Transmission Date: 20150821
  Serious: No
  Sender: FDA-Public Use
  Company Number: US-GLAXOSMITHKLINE-US2015056357

PATIENT
  Age: 51 Year
  Sex: Female

DRUGS (1)
  1. ABREVA [Suspect]
     Active Substance: DOCOSANOL
     Indication: ORAL HERPES
     Dosage: UNK

REACTIONS (8)
  - Oral herpes [Recovered/Resolved]
  - Lip exfoliation [Recovered/Resolved]
  - Thermal burn [Recovered/Resolved]
  - Lip blister [Recovered/Resolved]
  - Chapped lips [Recovered/Resolved]
  - Application site pain [Recovered/Resolved]
  - Oral discomfort [Recovered/Resolved]
  - Condition aggravated [Recovered/Resolved]
